FAERS Safety Report 15189747 (Version 3)
Quarter: 2018Q3

REPORT INFORMATION
  Report Type: Spontaneous
  Country: US (occurrence: US)
  Receive Date: 20180724
  Receipt Date: 20180809
  Transmission Date: 20181010
  Serious: Yes (Death, Hospitalization, Other)
  Sender: FDA-Public Use
  Company Number: US-PFIZER INC-2018294233

PATIENT
  Age: 2 Year
  Sex: Female

DRUGS (1)
  1. TEDRAL [Suspect]
     Active Substance: EPHEDRINE HYDROCHLORIDE\PHENOBARBITAL\THEOPHYLLINE
     Dosage: UNK (SEVEN OR EIGHT TEDRAL TABLETS)
     Route: 048

REACTIONS (10)
  - Cerebral haemorrhage [Fatal]
  - Seizure [Fatal]
  - Haematemesis [Fatal]
  - Toxicity to various agents [Fatal]
  - Oesophageal ulcer [Fatal]
  - Gastrointestinal haemorrhage [Fatal]
  - Muscle twitching [Fatal]
  - Cyanosis [Fatal]
  - Duodenal ulcer [Fatal]
  - Gastric ulcer [Fatal]
